FAERS Safety Report 10149772 (Version 1)
Quarter: 2014Q2

REPORT INFORMATION
  Report Type: Spontaneous
  Country: US (occurrence: None)
  Receive Date: 20140501
  Receipt Date: 20140501
  Transmission Date: 20141212
  Serious: Yes (Hospitalization)
  Sender: FDA-Public Use
  Company Number: None

PATIENT
  Age: 72 Year
  Sex: Female

DRUGS (10)
  1. APIXABAN [Suspect]
     Indication: ATRIAL FIBRILLATION
     Route: 048
     Dates: start: 20130823
  2. ASPIRIN [Concomitant]
  3. VALSARTAN [Concomitant]
  4. BIOTIN [Concomitant]
  5. POTASSIUM CHLORIDE [Concomitant]
  6. ATENOLOL [Concomitant]
  7. FLECAINIDE [Concomitant]
  8. APIXABAN [Concomitant]
  9. CADUET [Concomitant]
  10. NSAIDS [Concomitant]
     Indication: ATRIAL FIBRILLATION
     Route: 048
     Dates: start: 20130823

REACTIONS (4)
  - Haematemesis [None]
  - Gastric ulcer [None]
  - Haemoglobin decreased [None]
  - Haematochezia [None]
